FAERS Safety Report 26106775 (Version 3)
Quarter: 2025Q4

REPORT INFORMATION
  Report Type: Report from Study
  Country: EU (occurrence: EU)
  Receive Date: 20251201
  Receipt Date: 20251229
  Transmission Date: 20260118
  Serious: Yes (Hospitalization)
  Sender: DAIICHI
  Company Number: EU-ASTRAZENECA-202511GLO014764DE

PATIENT
  Sex: Female

DRUGS (5)
  1. ENHERTU [Suspect]
     Active Substance: FAM-TRASTUZUMAB DERUXTECAN-NXKI
     Indication: Breast cancer metastatic
     Dosage: 5.4 MG/KG
     Route: 042
     Dates: start: 20251006
  2. ZOMETA [Concomitant]
     Active Substance: ZOLEDRONIC ACID
     Indication: Supportive care
     Dosage: UNK
     Route: 042
     Dates: start: 20250620
  3. APREPITANT [Concomitant]
     Active Substance: APREPITANT
     Indication: Vomiting
     Dosage: 125 MILLIGRAM, CHEMOTERAPY DAY 1, EVERY CYCLE
     Route: 048
     Dates: start: 20251020
  4. APREPITANT [Concomitant]
     Active Substance: APREPITANT
     Dosage: 80 MILLIGRAM, CHEMOTERAPY DAY 1, EVERY CYCLE
     Route: 048
     Dates: start: 20251021
  5. PREDNISOLONE SODIUM PHOSPHATE [Concomitant]
     Active Substance: PREDNISOLONE SODIUM PHOSPHATE
     Indication: Product used for unknown indication
     Dosage: 120 MILLIGRAM, QD
     Route: 042
     Dates: start: 20251113

REACTIONS (3)
  - Pleural effusion [Not Recovered/Not Resolved]
  - Pneumonia [Not Recovered/Not Resolved]
  - Interstitial lung disease [Recovering/Resolving]

NARRATIVE: CASE EVENT DATE: 20251113
